FAERS Safety Report 17497498 (Version 1)
Quarter: 2020Q1

REPORT INFORMATION
  Report Type: Spontaneous
  Country: DE (occurrence: DE)
  Receive Date: 20200304
  Receipt Date: 20200304
  Transmission Date: 20200409
  Serious: Yes (Other)
  Sender: FDA-Public Use
  Company Number: DE-MYLANLABS-2020M1022585

PATIENT
  Age: 1 Day
  Sex: Male
  Weight: 2 kg

DRUGS (5)
  1. CITALOPRAM [Suspect]
     Active Substance: CITALOPRAM HYDROBROMIDE
     Indication: DEPRESSION
     Dosage: UNK(20 [MG/D ]/ INITIAL 10MG/D, DOSAGE INCREASED FROM WEEK 24)
     Route: 064
     Dates: start: 20181010, end: 20190213
  2. L-THYROX [Concomitant]
     Active Substance: LEVOTHYROXINE SODIUM
     Indication: HYPOTHYROIDISM
     Dosage: UNK(50 [?G/D ]/ INITIAL 25?G/D, DOSAGE INCREASE TO 50?G/D)
     Route: 064
     Dates: start: 20180528, end: 20190213
  3. DIAZEPAM. [Concomitant]
     Active Substance: DIAZEPAM
     Indication: ANXIETY
     Dosage: 15 MILLIGRAM, QD(15 [MG/D ]/ IF REQUIRED, 2X15 GTTS/D 2 SEPARATED DOSES)
     Route: 064
     Dates: start: 20180528, end: 20190213
  4. ORFIRIL [Suspect]
     Active Substance: VALPROATE SODIUM
     Indication: EPILEPSY
     Dosage: UNK(600 [MG/D ]/ INITIAL 2X300MG DAILY, DOSAGE REDUCTION TO 45MG/D AND FURTHER TO 30MG/D)
     Route: 064
     Dates: start: 20180528, end: 20190213
  5. BISOPROLOL [Suspect]
     Active Substance: BISOPROLOL
     Indication: HYPERTENSION
     Dosage: UNK(2.5 [MG/D ])
     Route: 064
     Dates: start: 20180528, end: 20190213

REACTIONS (3)
  - Hypoglycaemia [Recovered/Resolved]
  - Foetal exposure during pregnancy [Recovered/Resolved]
  - Small for dates baby [Recovered/Resolved]

NARRATIVE: CASE EVENT DATE: 20190213
